FAERS Safety Report 6125501-X (Version None)
Quarter: 2009Q1

REPORT INFORMATION
  Report Type: 
  Country: None (occurrence: None)
  Receive Date: 20090318
  Receipt Date: 20090309
  Transmission Date: 20090719
  Serious: Yes (Other)
  Sender: FDA-Public Use
  Company Number: 217451

PATIENT
  Age: 77 Year
  Sex: Female

DRUGS (1)
  1. AMIODARONE MAYNE (AMIODARONE) [Suspect]
     Indication: ATRIAL FIBRILLATION
     Dosage: INTRAVENOUS
     Route: 042

REACTIONS (3)
  - HEPATOTOXICITY [None]
  - INFECTION [None]
  - MULTI-ORGAN FAILURE [None]
